FAERS Safety Report 11782074 (Version 6)
Quarter: 2019Q4

REPORT INFORMATION
  Report Type: Report from Study
  Country: US (occurrence: US)
  Receive Date: 20151126
  Receipt Date: 20191115
  Transmission Date: 20200122
  Serious: Yes (Death, Hospitalization, Other)
  Sender: FDA-Public Use
  Company Number: US-ROCHE-1667905

PATIENT
  Age: 30 Year
  Sex: Female
  Weight: 119.1 kg

DRUGS (4)
  1. IRINOTECAN [Suspect]
     Active Substance: IRINOTECAN
     Indication: COLORECTAL CANCER METASTATIC
     Dosage: LAST DOSE PRIOR TO SAE :  19/NOV/2015
     Route: 042
     Dates: start: 20150702
  2. CETUXIMAB. [Suspect]
     Active Substance: CETUXIMAB
     Indication: COLORECTAL CANCER METASTATIC
     Dosage: LAST DOSE PRIOR TO SAE : 19/NOV/2015
     Route: 042
     Dates: start: 20150702
  3. FLUCONAZOLE. [Suspect]
     Active Substance: FLUCONAZOLE
     Indication: URINARY TRACT INFECTION
     Route: 048
  4. VEMURAFENIB. [Suspect]
     Active Substance: VEMURAFENIB
     Indication: COLORECTAL CANCER METASTATIC
     Dosage: DAYS 1-28?LAST DOSE PRIOR TO SAE : 23/NOV/2015?LAST DOSE ADMINISTERED: 14/DEC/2015.
     Route: 048

REACTIONS (6)
  - Disease progression [Fatal]
  - Pleural effusion [Recovered/Resolved]
  - Pneumonia [Unknown]
  - Alanine aminotransferase increased [Recovered/Resolved]
  - Urinary tract infection [Recovered/Resolved]
  - Aspartate aminotransferase increased [Recovered/Resolved]

NARRATIVE: CASE EVENT DATE: 20151124
